FAERS Safety Report 14299673 (Version 1)
Quarter: 2017Q4

REPORT INFORMATION
  Report Type: Spontaneous
  Country: NL (occurrence: NL)
  Receive Date: 20171219
  Receipt Date: 20171219
  Transmission Date: 20180321
  Serious: Yes (Other)
  Sender: FDA-Public Use
  Company Number: NL-ACCORD-061975

PATIENT
  Sex: Female

DRUGS (3)
  1. TACROLIMUS. [Concomitant]
     Active Substance: TACROLIMUS
     Indication: IMMUNOSUPPRESSANT DRUG THERAPY
     Dosage: TARGET BLOOD LEVELS OF 4-5 MG/L FOR THE FIRST 30 DAYS, AND 5-7 MG/L THEREAFTER
  2. MYCOPHENOLIC ACID. [Suspect]
     Active Substance: MYCOPHENOLIC ACID
     Indication: IMMUNOSUPPRESSANT DRUG THERAPY
     Dosage: TARGET AREA UNDER THE CURVE, 40-60 MG/ML/H
  3. PREDNISOLONE. [Concomitant]
     Active Substance: PREDNISOLONE
     Indication: IMMUNOSUPPRESSANT DRUG THERAPY
     Dosage: 0.1 MG/KG/D, ALSO RECEIVED 25 MG/DAY AND 100 MG MG ON DAYS 1-3

REACTIONS (1)
  - Norovirus test positive [Unknown]
